FAERS Safety Report 7307432-2 (Version None)
Quarter: 2011Q1

REPORT INFORMATION
  Report Type: 
  Country: None (occurrence: None)
  Receive Date: 20110223
  Receipt Date: 20110215
  Transmission Date: 20110831
  Serious: Yes (Death, Other)
  Sender: FDA-Public Use
  Company Number: US-PFIZER INC-2010121542

PATIENT
  Sex: Male

DRUGS (1)
  1. SUTENT [Suspect]
     Indication: THYROID CANCER
     Dosage: 50 MG, 1X/DAY
     Route: 048

REACTIONS (5)
  - ASPIRATION [None]
  - THYROID CANCER [None]
  - THROMBOCYTOPENIA [None]
  - DISEASE PROGRESSION [None]
  - PNEUMONIA [None]
